FAERS Safety Report 4430255-9 (Version None)
Quarter: 2004Q3

REPORT INFORMATION
  Report Type: 
  Country: None (occurrence: None)
  Receive Date: 20040820
  Receipt Date: 20040728
  Transmission Date: 20050211
  Serious: Yes (Hospitalization)
  Sender: FDA-Public Use
  Company Number: 238104

PATIENT
  Age: 43 Year
  Sex: Male
  Weight: 70 kg

DRUGS (7)
  1. ZYBAN [Suspect]
     Route: 065
     Dates: start: 20040626
  2. MIXTARD HUMAN 70/30 [Suspect]
     Dosage: 80IU PER DAY
     Route: 058
     Dates: start: 19900101
  3. NIQUITIN CQ [Concomitant]
     Dosage: 21MG PER DAY
     Route: 062
     Dates: start: 20040703
  4. PRAVASTATIN [Concomitant]
     Route: 065
  5. ASPIRIN [Concomitant]
     Route: 065
  6. ATENOLOL [Concomitant]
     Route: 065
  7. RAMIPRIL [Concomitant]
     Route: 065

REACTIONS (5)
  - ERYTHEMA [None]
  - EYE SWELLING [None]
  - FEELING HOT [None]
  - PRURITUS [None]
  - URTICARIA [None]
